FAERS Safety Report 19689965 (Version 1)
Quarter: 2021Q3

REPORT INFORMATION
  Report Type: Spontaneous
  Country: US (occurrence: US)
  Receive Date: 20210811
  Receipt Date: 20210811
  Transmission Date: 20211014
  Serious: No
  Sender: FDA-Public Use
  Company Number: None

PATIENT
  Age: 71 Year
  Sex: Male
  Weight: 95.85 kg

DRUGS (9)
  1. LEVOTHYROXINE. [Concomitant]
     Active Substance: LEVOTHYROXINE
  2. ATROVASTATIN [Concomitant]
     Active Substance: ATORVASTATIN CALCIUM
  3. LEVETIRACETAM. [Concomitant]
     Active Substance: LEVETIRACETAM
  4. LENVIMA [Concomitant]
     Active Substance: LENVATINIB
  5. METFORMIN [Concomitant]
     Active Substance: METFORMIN HYDROCHLORIDE
  6. VITAMIN B12 [Concomitant]
     Active Substance: CYANOCOBALAMIN
  7. LASIX [Concomitant]
     Active Substance: FUROSEMIDE
  8. EVEROLIMUS. [Suspect]
     Active Substance: EVEROLIMUS
     Indication: RENAL CANCER
     Route: 048
     Dates: start: 20210622, end: 20210726
  9. POTASSIUM [Concomitant]
     Active Substance: POTASSIUM

REACTIONS (2)
  - Hypophagia [None]
  - Diarrhoea [None]

NARRATIVE: CASE EVENT DATE: 20210622
